FAERS Safety Report 5573966-4 (Version None)
Quarter: 2007Q4

REPORT INFORMATION
  Report Type: 
  Country: None (occurrence: None)
  Receive Date: 20071220
  Receipt Date: 20071126
  Transmission Date: 20080405
  Serious: Yes (Death, Hospitalization)
  Sender: FDA-Public Use
  Company Number: 2007S1009700

PATIENT
  Age: 65 Year
  Sex: Male
  Weight: 61.2356 kg

DRUGS (12)
  1. FENTANYL TRANSDERMAL SYSTEM [Suspect]
     Indication: ABDOMINAL PAIN UPPER
     Dosage: 50 UG/HR; EVERY 3 DAYS; TRANSDERMAL
     Route: 062
     Dates: start: 20070801, end: 20070817
  2. FENTANYL TRANSDERMAL SYSTEM [Suspect]
     Indication: CANCER PAIN
     Dosage: 50 UG/HR; EVERY 3 DAYS; TRANSDERMAL
     Route: 062
     Dates: start: 20070801, end: 20070817
  3. FENTANYL TRANSDERMAL SYSTEM [Suspect]
     Indication: METASTASES TO LIVER
     Dosage: 50 UG/HR; EVERY 3 DAYS; TRANSDERMAL
     Route: 062
     Dates: start: 20070801, end: 20070817
  4. FENTANYL TRANSDERMAL SYSTEM [Suspect]
     Indication: ABDOMINAL PAIN UPPER
     Dosage: 25 MG/HR; EVERY 3 DAYS; TRANSDERMAL
     Route: 062
     Dates: start: 20070818, end: 20071101
  5. FENTANYL TRANSDERMAL SYSTEM [Suspect]
     Indication: CANCER PAIN
     Dosage: 25 MG/HR; EVERY 3 DAYS; TRANSDERMAL
     Route: 062
     Dates: start: 20070818, end: 20071101
  6. FENTANYL TRANSDERMAL SYSTEM [Suspect]
     Indication: METASTASES TO LIVER
     Dosage: 25 MG/HR; EVERY 3 DAYS; TRANSDERMAL
     Route: 062
     Dates: start: 20070818, end: 20071101
  7. ANTIBIOTICS [Suspect]
     Indication: BACTERAEMIA
     Dates: end: 20070101
  8. SODIUM CHLORIDE INJ [Suspect]
     Dosage: INTRAVENOUS
     Route: 042
     Dates: end: 20070101
  9. DEXTROSE [Suspect]
     Dosage: INTRAVENOUS
     Route: 042
     Dates: end: 20070101
  10. NEXIUM [Suspect]
     Dates: start: 20070801, end: 20070901
  11. REGLAN                           /00041901/ [Concomitant]
  12. ANTITHROMBOTIC AGENTS [Concomitant]

REACTIONS (7)
  - GENERAL PHYSICAL HEALTH DETERIORATION [None]
  - HYPERTENSION [None]
  - MEDICAL DEVICE COMPLICATION [None]
  - MOUTH HAEMORRHAGE [None]
  - PANCREATITIS [None]
  - POST PROCEDURAL COMPLICATION [None]
  - VISION BLURRED [None]
